FAERS Safety Report 18101446 (Version 1)
Quarter: 2020Q3

REPORT INFORMATION
  Report Type: Report from Study
  Country: None (occurrence: US)
  Receive Date: 20200801
  Receipt Date: 20200801
  Transmission Date: 20201103
  Serious: Yes (Hospitalization, Other)
  Sender: FDA-Public Use
  Company Number: US-ABBVIE-20K-163-3501475-00

PATIENT
  Age: 85 Year
  Sex: Male
  Weight: 62 kg

DRUGS (36)
  1. XTANDI [Suspect]
     Active Substance: ENZALUTAMIDE
     Route: 048
  2. SYNTHROID [Concomitant]
     Active Substance: LEVOTHYROXINE SODIUM
     Indication: PRODUCT USED FOR UNKNOWN INDICATION
  3. REMERON [Concomitant]
     Active Substance: MIRTAZAPINE
     Indication: PRODUCT USED FOR UNKNOWN INDICATION
  4. ALLEGRA [Concomitant]
     Active Substance: FEXOFENADINE HYDROCHLORIDE
     Indication: PRODUCT USED FOR UNKNOWN INDICATION
  5. MAGNESIUM OXIDE. [Concomitant]
     Active Substance: MAGNESIUM OXIDE
     Indication: PRODUCT USED FOR UNKNOWN INDICATION
  6. PROLIA [Concomitant]
     Active Substance: DENOSUMAB
     Indication: PRODUCT USED FOR UNKNOWN INDICATION
  7. GAVILYTE G [Concomitant]
     Active Substance: POLYETHYLENE GLYCOL 3350\POTASSIUM CHLORIDE\SODIUM BICARBONATE\SODIUM CHLORIDE\SODIUM SULFATE ANHYDROUS
     Indication: PRODUCT USED FOR UNKNOWN INDICATION
     Dosage: SUSPENSION
  8. MUCUS RELIEF [Concomitant]
     Active Substance: GUAIFENESIN
     Indication: PRODUCT USED FOR UNKNOWN INDICATION
  9. EFFEXOR [Concomitant]
     Active Substance: VENLAFAXINE HYDROCHLORIDE
     Indication: PRODUCT USED FOR UNKNOWN INDICATION
  10. LUPRON [Suspect]
     Active Substance: LEUPROLIDE ACETATE
     Indication: PROSTATE CANCER METASTATIC
     Route: 030
  11. ACID REDUCER [Concomitant]
     Indication: PRODUCT USED FOR UNKNOWN INDICATION
  12. XTANDI [Suspect]
     Active Substance: ENZALUTAMIDE
     Indication: PROSTATE CANCER METASTATIC
     Route: 048
     Dates: start: 20180416
  13. XTANDI [Suspect]
     Active Substance: ENZALUTAMIDE
     Route: 048
  14. TRAMADOL. [Concomitant]
     Active Substance: TRAMADOL
     Indication: PRODUCT USED FOR UNKNOWN INDICATION
  15. TYLENOL [Concomitant]
     Active Substance: ACETAMINOPHEN
     Indication: PRODUCT USED FOR UNKNOWN INDICATION
  16. CALTRATE WITH VITAMIN D [Concomitant]
     Active Substance: CALCIUM CARBONATE\CHOLECALCIFEROL
     Indication: PRODUCT USED FOR UNKNOWN INDICATION
  17. ONE?A?DAY NOS [Concomitant]
     Active Substance: MINERALS\VITAMINS
     Indication: PRODUCT USED FOR UNKNOWN INDICATION
  18. ASPIRIN. [Concomitant]
     Active Substance: ASPIRIN
     Indication: PRODUCT USED FOR UNKNOWN INDICATION
  19. CEFTIN [Concomitant]
     Active Substance: CEFUROXIME AXETIL
     Indication: PRODUCT USED FOR UNKNOWN INDICATION
  20. ZOFRAN [Concomitant]
     Active Substance: ONDANSETRON HYDROCHLORIDE
     Indication: PRODUCT USED FOR UNKNOWN INDICATION
  21. COZAAR [Concomitant]
     Active Substance: LOSARTAN POTASSIUM
     Indication: PRODUCT USED FOR UNKNOWN INDICATION
  22. PROTONIX [Concomitant]
     Active Substance: PANTOPRAZOLE SODIUM
     Indication: PRODUCT USED FOR UNKNOWN INDICATION
  23. MEGESTROL ACETATE. [Concomitant]
     Active Substance: MEGESTROL ACETATE
     Indication: PRODUCT USED FOR UNKNOWN INDICATION
  24. CALCIUM CITRATE [Concomitant]
     Active Substance: CALCIUM CITRATE
     Indication: PRODUCT USED FOR UNKNOWN INDICATION
  25. VIBRAMYCIN [Concomitant]
     Active Substance: DOXYCYCLINE
     Indication: PRODUCT USED FOR UNKNOWN INDICATION
  26. BACTRIM DS [Concomitant]
     Active Substance: SULFAMETHOXAZOLE\TRIMETHOPRIM
     Indication: PRODUCT USED FOR UNKNOWN INDICATION
  27. VENLAFAXINE [Concomitant]
     Active Substance: VENLAFAXINE HYDROCHLORIDE
     Indication: PRODUCT USED FOR UNKNOWN INDICATION
  28. SINEMET [Concomitant]
     Active Substance: CARBIDOPA\LEVODOPA
     Indication: PRODUCT USED FOR UNKNOWN INDICATION
  29. MIRALAX [Concomitant]
     Active Substance: POLYETHYLENE GLYCOL 3350
     Indication: PRODUCT USED FOR UNKNOWN INDICATION
  30. VITAMIN D3 [Concomitant]
     Active Substance: CHOLECALCIFEROL
     Indication: PRODUCT USED FOR UNKNOWN INDICATION
  31. XTANDI [Suspect]
     Active Substance: ENZALUTAMIDE
     Route: 048
     Dates: start: 20190509
  32. NORVASC [Concomitant]
     Active Substance: AMLODIPINE BESYLATE
     Indication: PRODUCT USED FOR UNKNOWN INDICATION
  33. DOCUSATE SODIUM. [Concomitant]
     Active Substance: DOCUSATE SODIUM
     Indication: PRODUCT USED FOR UNKNOWN INDICATION
  34. MEGESTROL [Concomitant]
     Active Substance: MEGESTROL
     Indication: PRODUCT USED FOR UNKNOWN INDICATION
  35. CENTRUM SILVER [Concomitant]
     Active Substance: MINERALS\VITAMINS
     Indication: PRODUCT USED FOR UNKNOWN INDICATION
  36. CIPRO [Concomitant]
     Active Substance: CIPROFLOXACIN HYDROCHLORIDE
     Indication: PRODUCT USED FOR UNKNOWN INDICATION

REACTIONS (46)
  - Inguinal hernia [Unknown]
  - Spinal compression fracture [Not Recovered/Not Resolved]
  - Fall [Unknown]
  - Cystitis [Unknown]
  - Pneumonia [Unknown]
  - Cardiac disorder [Unknown]
  - Fall [Unknown]
  - Paraesthesia [Not Recovered/Not Resolved]
  - Hypertension [Not Recovered/Not Resolved]
  - Urinary tract obstruction [Unknown]
  - Rectal haemorrhage [Not Recovered/Not Resolved]
  - Urinary tract infection pseudomonal [Unknown]
  - Prostatomegaly [Unknown]
  - Hypersomnia [Not Recovered/Not Resolved]
  - Hospice care [Unknown]
  - Cataract [Unknown]
  - Lymphoma [Unknown]
  - Somnolence [Not Recovered/Not Resolved]
  - Peripheral swelling [Not Recovered/Not Resolved]
  - Night sweats [Unknown]
  - Anaemia [Not Recovered/Not Resolved]
  - Nocturia [Not Recovered/Not Resolved]
  - Weight decreased [Not Recovered/Not Resolved]
  - Prostate cancer [Not Recovered/Not Resolved]
  - Rhinorrhoea [Unknown]
  - Haemoglobin decreased [Unknown]
  - Joint swelling [Not Recovered/Not Resolved]
  - Bladder catheterisation [Unknown]
  - Arthralgia [Unknown]
  - Amnesia [Unknown]
  - Bladder obstruction [Unknown]
  - Tonsillectomy [Unknown]
  - Neoplasm malignant [Unknown]
  - Foreign body in throat [Unknown]
  - Decreased appetite [Recovering/Resolving]
  - Osteoporosis [Not Recovered/Not Resolved]
  - Hypertension [Unknown]
  - Hot flush [Not Recovered/Not Resolved]
  - Dehydration [Unknown]
  - Kidney infection [Unknown]
  - Radiotherapy [Unknown]
  - Micturition urgency [Not Recovered/Not Resolved]
  - Hydronephrosis [Unknown]
  - Fatigue [Recovering/Resolving]
  - Back pain [Not Recovered/Not Resolved]
  - Dyspepsia [Recovering/Resolving]

NARRATIVE: CASE EVENT DATE: 20180514
